FAERS Safety Report 20102056 (Version 1)
Quarter: 2021Q4

REPORT INFORMATION
  Report Type: Spontaneous
  Country: US (occurrence: US)
  Receive Date: 20211123
  Receipt Date: 20211123
  Transmission Date: 20220303
  Serious: No
  Sender: FDA-Public Use
  Company Number: US-PFIZER INC-2021548163

PATIENT
  Age: 34 Year
  Sex: Female

DRUGS (1)
  1. XELJANZ XR [Suspect]
     Active Substance: TOFACITINIB CITRATE
     Dosage: 11 MG, 1X/DAY, [QUANTITY #30 (30 DAYS)]
     Route: 048

REACTIONS (3)
  - Leukocytosis [Unknown]
  - Rheumatoid factor positive [Unknown]
  - Antinuclear antibody positive [Unknown]
